FAERS Safety Report 16093381 (Version 38)
Quarter: 2022Q3

REPORT INFORMATION
  Report Type: Other
  Country: GB (occurrence: GB)
  Receive Date: 20190320
  Receipt Date: 20220708
  Transmission Date: 20221027
  Serious: Yes (Death, Life-Threatening, Hospitalization, Disabling, Other)
  Sender: FDA-Public Use
  Company Number: None

PATIENT
  Age: 47 Year
  Sex: Female

DRUGS (38)
  1. AMLODIPINE [Suspect]
     Active Substance: AMLODIPINE BESYLATE
     Indication: Hypertension
     Dosage: 100 MILLIGRAM, QD (MEDICATION ERROR, MISUSE), TABLET
     Route: 048
     Dates: start: 20180928, end: 20180928
  2. SERTRALINE [Suspect]
     Active Substance: SERTRALINE HYDROCHLORIDE
     Indication: Depression
     Dosage: 50 MILLIGRAM, QD, AM (MEDICATION ERROR, MISUSE)
     Route: 048
     Dates: start: 201709, end: 20180928
  3. LOSARTAN POTASSIUM [Suspect]
     Active Substance: LOSARTAN POTASSIUM
     Indication: Hypertension
     Dosage: 100 MG, QD, MEDICATION ERROR, MISUSE
     Route: 048
     Dates: end: 20180928
  4. LOSARTAN POTASSIUM [Suspect]
     Active Substance: LOSARTAN POTASSIUM
     Indication: Schizophrenia
     Dosage: 100 MILLIGRAM, QD, (FILM-COATED TABLET)
     Route: 048
     Dates: end: 20180928
  5. LOSARTAN POTASSIUM [Suspect]
     Active Substance: LOSARTAN POTASSIUM
     Dosage: 200 MG, QD (FILM-COATED TABLET)
     Route: 048
     Dates: start: 20170317, end: 20180928
  6. PRAVASTATIN SODIUM [Suspect]
     Active Substance: PRAVASTATIN SODIUM
     Indication: Blood cholesterol increased
     Dosage: 40 MILLIGRAM, QD, HS
     Route: 048
  7. PRAVASTATIN SODIUM [Suspect]
     Active Substance: PRAVASTATIN SODIUM
     Indication: Depression
     Dosage: 40 MG, QD M QHS
     Route: 048
  8. PRAVASTATIN SODIUM [Suspect]
     Active Substance: PRAVASTATIN SODIUM
     Dosage: 40 MG, QD PM QHS
     Route: 048
  9. PRAVASTATIN SODIUM [Suspect]
     Active Substance: PRAVASTATIN SODIUM
     Dosage: 40 MG, QD M QHS
     Route: 048
  10. PRAVASTATIN SODIUM [Suspect]
     Active Substance: PRAVASTATIN SODIUM
     Dosage: 50 MILLIGRAM, QD
     Route: 048
     Dates: start: 201709
  11. PRAVASTATIN SODIUM [Suspect]
     Active Substance: PRAVASTATIN SODIUM
     Dosage: 50 MILLIGRAM, QD AM
     Route: 048
     Dates: start: 201709
  12. LANSOPRAZOLE [Suspect]
     Active Substance: LANSOPRAZOLE
     Indication: Gastrooesophageal reflux disease
     Dosage: 30 MG, QD, AM, MEDICATION ERROR, MISUSE
     Route: 065
     Dates: end: 20180928
  13. LANSOPRAZOLE [Suspect]
     Active Substance: LANSOPRAZOLE
     Indication: Blood cholesterol increased
     Dosage: 40 MILLIGRAM, QD
     Route: 065
     Dates: end: 20180928
  14. LANSOPRAZOLE [Suspect]
     Active Substance: LANSOPRAZOLE
     Dosage: 30 MILLIGRAM, QD
     Route: 065
  15. LANSOPRAZOLE [Suspect]
     Active Substance: LANSOPRAZOLE
     Dosage: 30 MILLIGRAM
     Route: 065
     Dates: end: 20180928
  16. EZETIMIBE [Suspect]
     Active Substance: EZETIMIBE
     Indication: Blood cholesterol increased
     Dosage: 10 MG, QD
     Route: 048
     Dates: end: 20180928
  17. HUMALOG MIX50/50 [Suspect]
     Active Substance: INSULIN LISPRO
     Indication: Diabetes mellitus
     Dosage: 120 INTERNATIONAL UNIT, TID, MEDICATION ERROR
     Route: 048
     Dates: end: 20180928
  18. HUMALOG MIX50/50 [Suspect]
     Active Substance: INSULIN LISPRO
     Dosage: 60 INTERNATIONAL UNIT, TID
     Route: 048
     Dates: end: 20180928
  19. HUMALOG MIX50/50 [Suspect]
     Active Substance: INSULIN LISPRO
     Dosage: 120 INTERNATIONAL UNIT, TID
     Route: 048
     Dates: end: 20180928
  20. HUMALOG MIX50/50 [Suspect]
     Active Substance: INSULIN LISPRO
     Dosage: 360 INTERNATIONAL UNIT, QD, MEDICATION ERROR
     Route: 048
     Dates: end: 20180928
  21. HUMALOG MIX50/50 [Suspect]
     Active Substance: INSULIN LISPRO
     Dosage: 360 INTERNATIONAL UNIT, QD
     Route: 048
     Dates: end: 20180928
  22. HUMALOG MIX50/50 [Suspect]
     Active Substance: INSULIN LISPRO
     Dosage: 540 INTERNATIONAL UNIT, (60 IU, TID )
     Route: 048
     Dates: end: 20180928
  23. HUMALOG MIX50/50 [Suspect]
     Active Substance: INSULIN LISPRO
     Dosage: 1080 INTERNATIONAL UNIT, QD, (120 INTERNATIONAL UNITS, TID )
     Route: 048
     Dates: end: 20180928
  24. HUMALOG MIX50/50 [Suspect]
     Active Substance: INSULIN LISPRO
     Dosage: 60 INTERNATIONAL UNIT, TID
     Route: 048
     Dates: start: 20180928
  25. HUMALOG MIX50/50 [Suspect]
     Active Substance: INSULIN LISPRO
     Dosage: 360 INTERNATIONAL UNIT, TID
     Route: 048
  26. HUMALOG MIX50/50 [Suspect]
     Active Substance: INSULIN LISPRO
     Dosage: 180 INTERNATIONAL UNIT, TID
     Route: 048
     Dates: end: 20180928
  27. FELODIPINE [Suspect]
     Active Substance: FELODIPINE
     Indication: Hypertension
     Dosage: 10 MG, QD, MEDICATION ERROR, MISUSE
     Route: 048
     Dates: end: 20180928
  28. CLOZARIL [Suspect]
     Active Substance: CLOZAPINE
     Indication: Schizophrenia
     Dosage: 200 MG, QD TABLET
     Route: 048
     Dates: start: 20170317, end: 20180928
  29. CLOZARIL [Suspect]
     Active Substance: CLOZAPINE
     Indication: Blood cholesterol increased
     Dosage: 200 MG, QD, (PM, 1 DAY)
     Route: 048
     Dates: start: 20170317, end: 20180928
  30. CLOZARIL [Suspect]
     Active Substance: CLOZAPINE
     Dosage: 200 MILLIGRAM, QD (PRN)
     Route: 048
     Dates: start: 20170317, end: 20180928
  31. CLOZARIL [Suspect]
     Active Substance: CLOZAPINE
     Dosage: 100 MILLIGRAM, QD
     Route: 048
     Dates: start: 20180928
  32. CLOZARIL [Suspect]
     Active Substance: CLOZAPINE
     Dosage: 10 MILLIGRAM, QD-TABLET
     Route: 048
     Dates: end: 20180928
  33. HUMALOG [Suspect]
     Active Substance: INSULIN LISPRO
     Indication: Diabetes mellitus
     Dosage: 360 INTERNATIONAL UNIT, QD
     Route: 048
  34. HUMALOG [Suspect]
     Active Substance: INSULIN LISPRO
     Dosage: 120 INTERNATIONAL UNIT, TID
     Route: 048
     Dates: end: 20180928
  35. HUMALOG [Suspect]
     Active Substance: INSULIN LISPRO
     Dosage: 60 INTERNATIONAL UNIT, TID
     Route: 048
     Dates: end: 20180928
  36. HUMALOG [Suspect]
     Active Substance: INSULIN LISPRO
     Dosage: 1080 INTERNATIONAL UNIT, QD (120 INTERNATIONAL UNIT, TID)
     Route: 065
     Dates: end: 20180928
  37. HUMALOG [Suspect]
     Active Substance: INSULIN LISPRO
     Dosage: 540 INTERNATIONAL UNIT, QD (60 INTERNATIONAL UNIT, TID)
     Route: 048
     Dates: end: 20180928
  38. HUMALOG [Suspect]
     Active Substance: INSULIN LISPRO
     Dosage: 120 INTERNATIONAL UNIT, TID
     Route: 048
     Dates: end: 20180928

REACTIONS (8)
  - Multiple organ dysfunction syndrome [Fatal]
  - Pneumonia [Fatal]
  - Loss of consciousness [Fatal]
  - Incorrect route of product administration [Fatal]
  - Medication error [Fatal]
  - Intentional product misuse [Fatal]
  - Off label use [Fatal]
  - Overdose [Fatal]

NARRATIVE: CASE EVENT DATE: 20180101
